FAERS Safety Report 5591913-6 (Version None)
Quarter: 2008Q1

REPORT INFORMATION
  Report Type: 
  Country: None (occurrence: None)
  Receive Date: 20080115
  Receipt Date: 20080108
  Transmission Date: 20080703
  Serious: Yes (Other)
  Sender: FDA-Public Use
  Company Number: ES-AVENTIS-200720231GDDC

PATIENT
  Sex: Female

DRUGS (2)
  1. LANTUS [Suspect]
     Route: 058
     Dates: start: 20041218
  2. NOVORAPID FLEXPEN [Suspect]
     Dosage: FREQUENCY: BEFORE MEALS
     Route: 058
     Dates: start: 20041218

REACTIONS (1)
  - STILLBIRTH [None]
